FAERS Safety Report 22533041 (Version 1)
Quarter: 2023Q2

REPORT INFORMATION
  Report Type: Spontaneous
  Country: US (occurrence: US)
  Receive Date: 20230607
  Receipt Date: 20230607
  Transmission Date: 20230722
  Serious: No
  Sender: FDA-Public Use
  Company Number: US-GALDERMA-US2023008085

PATIENT

DRUGS (5)
  1. PROACTIV MD ADAPALENE ACNE TREATMENT [Suspect]
     Active Substance: ADAPALENE
     Indication: Acne
     Dosage: 1 DOSAGE FORM, QD, EVERY NIGHT, LESS THAN A PEA SIZE
     Route: 061
     Dates: start: 202302
  2. Proactiv MD Ultra Gentle Cleanser [Concomitant]
     Indication: Acne
     Dosage: 1 DOSAGE FORM, BID, PEA SIZE, SOMETIMES A LITTLE BIT MORE, CHIN, UNDERNEATH MY CHIN, WHERE SHE BREAK
     Route: 061
     Dates: start: 202302
  3. Proactiv MD Ultra Hydrating Moisturizer [Concomitant]
     Indication: Acne
     Dosage: 1 DOSAGE FORM, BID, PEA SIZE, SOMETIMES A LITTLE BIT MORE, CHIN, UNDERNEATH MY CHIN, WHERE SHE BREAK
     Route: 061
     Dates: start: 202302
  4. Proactiv Post Acne Dark Mark Relief [Concomitant]
     Indication: Acne
     Dosage: 1 DOSAGE FORM, BID, PEA SIZE, SOMETIMES A LITTLE BIT MORE, CHIN, UNDERNEATH MY CHIN, WHERE SHE BREAK
     Route: 061
     Dates: start: 202302
  5. Proactiv Post Acne Scar Gel [Concomitant]
     Indication: Acne
     Dosage: 1 DOSAGE FORM, BID, PEA SIZE, SOMETIMES A LITTLE BIT MORE, CHIN, UNDERNEATH MY CHIN, WHERE SHE BREAK
     Route: 061
     Dates: start: 202302

REACTIONS (1)
  - Drug ineffective [Unknown]
